FAERS Safety Report 9765958 (Version 1)
Quarter: 2013Q4

REPORT INFORMATION
  Report Type: Spontaneous
  Country: US (occurrence: US)
  Receive Date: 20131217
  Receipt Date: 20131217
  Transmission Date: 20140711
  Serious: No
  Sender: FDA-Public Use
  Company Number: US-BIOGENIDEC-2013BI114723

PATIENT
  Age: 48 Year
  Sex: Female

DRUGS (5)
  1. TECFIDERA [Suspect]
     Indication: MULTIPLE SCLEROSIS
     Route: 048
     Dates: start: 201311, end: 201311
  2. TECFIDERA [Suspect]
     Indication: MULTIPLE SCLEROSIS
     Route: 048
     Dates: start: 201311, end: 201311
  3. AMBIEN [Concomitant]
  4. NEURONTIN [Concomitant]
  5. NUCYNTA [Concomitant]

REACTIONS (4)
  - Back pain [Unknown]
  - Pain in extremity [Unknown]
  - Cystitis [Unknown]
  - Nuclear magnetic resonance imaging abnormal [Unknown]
